FAERS Safety Report 10543651 (Version 1)
Quarter: 2014Q4

REPORT INFORMATION
  Report Type: Report from Study
  Country: US (occurrence: US)
  Receive Date: 20141027
  Receipt Date: 20141027
  Transmission Date: 20150529
  Serious: No
  Sender: FDA-Public Use
  Company Number: US-ABBVIE-13P-163-1158435-00

PATIENT
  Sex: Female
  Weight: 76.27 kg

DRUGS (11)
  1. NEXIUM [Concomitant]
     Active Substance: ESOMEPRAZOLE MAGNESIUM
     Indication: PRODUCT USED FOR UNKNOWN INDICATION
  2. CLONAZEPAM. [Concomitant]
     Active Substance: CLONAZEPAM
     Indication: TREMOR
  3. LUPRON DEPOT [Suspect]
     Active Substance: LEUPROLIDE ACETATE
     Indication: UTERINE LEIOMYOMA
     Route: 030
     Dates: start: 20130918
  4. DILANTIN [Concomitant]
     Active Substance: PHENYTOIN
     Indication: SEIZURE
     Dosage: 100 MG IN AM AND 200MG IN PM
     Route: 048
  5. RANITIDINE [Concomitant]
     Active Substance: RANITIDINE\RANITIDINE HYDROCHLORIDE
     Indication: PRODUCT USED FOR UNKNOWN INDICATION
  6. MULTIVITAMIN [Concomitant]
     Active Substance: VITAMINS
     Indication: PRODUCT USED FOR UNKNOWN INDICATION
  7. CLINDAMYCIN [Concomitant]
     Active Substance: CLINDAMYCIN\CLINDAMYCIN PHOSPHATE
     Indication: SKIN DISORDER
     Route: 061
  8. TESLON PEARLS [Concomitant]
     Indication: PRODUCT USED FOR UNKNOWN INDICATION
  9. MAALOX ANTACID [Concomitant]
     Active Substance: ALUMINUM HYDROXIDE\DIMETHICONE\MAGNESIUM HYDROXIDE
     Indication: GASTROOESOPHAGEAL REFLUX DISEASE
  10. MINOCYCLINE [Concomitant]
     Active Substance: MINOCYCLINE\MINOCYCLINE HYDROCHLORIDE
     Indication: SKIN DISORDER
  11. TYLENOL [Concomitant]
     Active Substance: ACETAMINOPHEN
     Indication: PAIN

REACTIONS (2)
  - Rash [Not Recovered/Not Resolved]
  - Acne [Not Recovered/Not Resolved]
